FAERS Safety Report 8846679 (Version 1)
Quarter: 2012Q4

REPORT INFORMATION
  Report Type: Report from Study
  Country: DE (occurrence: DE)
  Receive Date: 20121017
  Receipt Date: 20121017
  Transmission Date: 20130627
  Serious: Yes (Life-Threatening, Hospitalization)
  Sender: FDA-Public Use
  Company Number: DE-PFIZER INC-2011186793

PATIENT
  Age: 56 Year
  Sex: Female
  Weight: 110 kg

DRUGS (6)
  1. GENOTROPIN [Suspect]
     Indication: HYPOPITUITARISM
     Dosage: 0.5 mg, 1x/day
     Dates: start: 200711
  2. NOVONORM [Concomitant]
     Indication: DIABETES MELLITUS
     Dosage: 0.5 mg, 1x/day
     Route: 048
     Dates: start: 20070525, end: 2010
  3. METFORMIN [Concomitant]
     Indication: DIABETES MELLITUS
     Dosage: 1000 mg, 2x/day
     Route: 048
     Dates: start: 20070525, end: 2010
  4. CONCOR [Concomitant]
     Indication: ESSENTIAL HYPERTENSION
     Dosage: 5 mg, 2x/day
     Route: 048
     Dates: start: 20070525
  5. RAMIPRIL [Concomitant]
     Indication: ESSENTIAL HYPERTENSION
     Dosage: 5 mg, 2x/day
     Dates: start: 20070525
  6. ALLOPURINOL [Concomitant]
     Dosage: 150 mg, 1x/day
     Dates: start: 20070525, end: 2009

REACTIONS (2)
  - Breast cancer [Unknown]
  - Invasive lobular breast carcinoma [Recovered/Resolved with Sequelae]
